FAERS Safety Report 8308369-2 (Version None)
Quarter: 2012Q2

REPORT INFORMATION
  Report Type: 
  Country: None (occurrence: None)
  Receive Date: 20120424
  Receipt Date: 20120417
  Transmission Date: 20120825
  Serious: Yes (Other)
  Sender: FDA-Public Use
  Company Number: US-JNJFOC-20120409255

PATIENT
  Age: 82 Year
  Sex: Female
  Weight: 63.5 kg

DRUGS (3)
  1. ROGAINE (FOR WOMEN) [Suspect]
     Route: 061
  2. ROGAINE (FOR WOMEN) [Suspect]
     Indication: ALOPECIA
     Dosage: UNSPECIFIED DOSE
     Route: 061
     Dates: start: 20040101, end: 20120101
  3. SYNTHROID [Concomitant]
     Route: 065

REACTIONS (2)
  - UNDERDOSE [None]
  - RECURRENT CANCER [None]
